FAERS Safety Report 8067144-7 (Version None)
Quarter: 2012Q1

REPORT INFORMATION
  Report Type: 
  Country: None (occurrence: None)
  Receive Date: 20120124
  Receipt Date: 20120117
  Transmission Date: 20120608
  Serious: Yes (Other)
  Sender: FDA-Public Use
  Company Number: US-TEVA-317950USA

PATIENT

DRUGS (1)
  1. COPAXONE [Suspect]
     Dosage: THE SUSPECT MEDICATION WAS TAKEN BY THE FATHER
     Route: 065

REACTIONS (1)
  - ABORTION SPONTANEOUS [None]
